FAERS Safety Report 11223638 (Version 2)
Quarter: 2015Q3

REPORT INFORMATION
  Report Type: Report from Study
  Country: US (occurrence: US)
  Receive Date: 20150629
  Receipt Date: 20150717
  Transmission Date: 20151125
  Serious: Yes (Life-Threatening, Other)
  Sender: FDA-Public Use
  Company Number: US-MERCK-1506USA013376

PATIENT

DRUGS (3)
  1. BORTEZOMIB [Suspect]
     Active Substance: BORTEZOMIB
     Indication: NEUROBLASTOMA
     Dosage: 1 MG/M2 PER DOSE, 3 CYCLES
  2. ZOLINZA [Suspect]
     Active Substance: VORINOSTAT
     Indication: NEUROBLASTOMA
     Dosage: 230 MG/M2 PER DAY, 3 CYCLES
     Route: 048
  3. DOXORUBICIN [Suspect]
     Active Substance: DOXORUBICIN
     Indication: NEUROBLASTOMA
     Dosage: 30 MG/M2 PER DOSE, 3 CYCLES

REACTIONS (4)
  - Alanine aminotransferase increased [Unknown]
  - Neutropenia [Unknown]
  - Leukopenia [Unknown]
  - Thrombocytopenia [Unknown]
